FAERS Safety Report 5374428-X (Version None)
Quarter: 2007Q2

REPORT INFORMATION
  Report Type: 
  Country: None (occurrence: None)
  Receive Date: 20070629
  Receipt Date: 20070618
  Transmission Date: 20071010
  Serious: Yes (Other)
  Sender: FDA-Public Use
  Company Number: CH-BRACCO-BRO-011796

PATIENT
  Age: 51 Year
  Sex: Male

DRUGS (6)
  1. PROHANCE [Suspect]
     Indication: NUCLEAR MAGNETIC RESONANCE IMAGING ABDOMINAL
     Route: 050
     Dates: start: 20040319, end: 20040319
  2. PROHANCE [Suspect]
     Route: 050
     Dates: start: 20040622, end: 20040622
  3. PROHANCE [Suspect]
     Route: 050
     Dates: start: 20041015, end: 20041015
  4. PROHANCE [Suspect]
     Route: 050
     Dates: start: 20050428, end: 20050428
  5. PROHANCE [Suspect]
     Route: 050
     Dates: start: 20051118, end: 20051118
  6. PROHANCE [Suspect]
     Route: 050
     Dates: start: 20060228, end: 20060228

REACTIONS (1)
  - NEPHROGENIC FIBROSING DERMOPATHY [None]
